FAERS Safety Report 9204924 (Version 1)
Quarter: 2013Q1

REPORT INFORMATION
  Report Type: Spontaneous
  Country: US (occurrence: None)
  Receive Date: 20120709
  Receipt Date: 20120709
  Transmission Date: 20140127
  Serious: No
  Sender: FDA-Public Use
  Company Number: 2012HGS-003467

PATIENT
  Age: 39 Year
  Sex: Female

DRUGS (20)
  1. BENLYSTA [Suspect]
     Indication: SYSTEMIC LUPUS ERYTHEMATOSUS
     Dosage: 1 IN 28 DAY
     Route: 041
     Dates: start: 20110831
  2. TRAZODONE(TRAZODONE) (TRAZODONE) [Concomitant]
  3. ZONEGRAN (ZONISAMIDE)(ZONISAMIDE) [Concomitant]
  4. METHADONE(METHADONE) [Concomitant]
  5. RELAFEN(NABUMETONE)(NABUMETONE) [Concomitant]
  6. LAMICTAL(LAMOTRIGINE)(LAMOTRIGINE) [Concomitant]
  7. SINGULAIR [Concomitant]
  8. NEXIUM(ESOMEPRAZOLE MAGNESIUM) (ESOMEPRAZOLE MAGNESIUM) [Concomitant]
  9. ALLEGRA (FEXOFENADINE HYDROCHLORIDE) (FEXOFENDADINE HYDROCHLORIDE) [Concomitant]
  10. PLAQUENIL (HYDROXYCHOLOROQUINE PHOSPHATE)(HYDROXYCHLOROQUINE PHOSPHATE) [Concomitant]
  11. PROCARDIA ZL (NIFEDIPINE)(NIFEDIPINE) [Concomitant]
  12. LIPITOR (ATRORVASTATIN CALCIUM) (ATORVASTATIN CALCIUM) [Concomitant]
  13. BYSTOLIC (NEBIVOLL HYDROCHLORIDE)(NEBIVOLOL HYDROCHLORIDE) [Concomitant]
  14. CYMBALTA(DULOXETINE HYDROCHLORIDE) (DULOXETINE HYDROCHLORIDE) [Concomitant]
  15. VITAMIN E (TOCOPHEROL)(TOCOPHEROL) [Concomitant]
  16. VITAMIN D (ERGOCALCIFEROL)(ERGOCALCIFEROL) [Concomitant]
  17. CALCIUM (CALCIUM) (CALCIUM [Concomitant]
  18. ASPIRIN (ACETYLSALICCYLIC ACID)(ACETYLSALICYLIC ACID) [Concomitant]
  19. MULTIVITAMIN(VIGRAN)(EGRGOCALCIFEROL, ASCORBIC ACID, PYRIDOXINE HYDROCHLORIDE, THIAMINE HYDROCHLORID, RETINOL, RIBOFLAVINE, NICOTINEAMIDE, CALCIUM PANTOTHENATE [Concomitant]
  20. IMITREX(SUMATRIPTAN)(SUMATRIPTAN) [Concomitant]

REACTIONS (5)
  - Lethargy [None]
  - Alopecia [None]
  - Nausea [None]
  - Headache [None]
  - Sinusitis [None]
